FAERS Safety Report 9284361 (Version 1)
Quarter: 2013Q2

REPORT INFORMATION
  Report Type: Spontaneous
  Country: US (occurrence: US)
  Receive Date: 20130510
  Receipt Date: 20130510
  Transmission Date: 20140414
  Serious: No
  Sender: FDA-Public Use
  Company Number: US-ASTRAZENECA-2013SE29468

PATIENT
  Age: 74 Year
  Sex: Female
  Weight: 78.5 kg

DRUGS (5)
  1. NEXIUM [Suspect]
     Indication: IRRITABLE BOWEL SYNDROME
     Route: 048
     Dates: start: 2010, end: 201301
  2. OMEPRAZOLE [Suspect]
     Indication: IRRITABLE BOWEL SYNDROME
     Route: 048
     Dates: start: 201301
  3. LEVAQUIN [Concomitant]
     Indication: INFECTION
     Dates: start: 1998
  4. SIMVASTATIN [Concomitant]
     Indication: BLOOD CHOLESTEROL ABNORMAL
     Dates: start: 2005
  5. LOSAARTAN [Concomitant]
     Indication: BLOOD PRESSURE ABNORMAL
     Dates: start: 2005

REACTIONS (9)
  - Irritability [Unknown]
  - Osteoarthritis [Unknown]
  - Glaucoma [Unknown]
  - Device related infection [Unknown]
  - Arthropathy [Unknown]
  - Diarrhoea [Unknown]
  - Malaise [Unknown]
  - Constipation [Unknown]
  - Off label use [Unknown]
